FAERS Safety Report 7077194-5 (Version None)
Quarter: 2010Q4

REPORT INFORMATION
  Report Type: 
  Country: None (occurrence: None)
  Receive Date: 20101101
  Receipt Date: 20101022
  Transmission Date: 20110411
  Serious: Yes (Other)
  Sender: FDA-Public Use
  Company Number: B0682114A

PATIENT
  Age: 66 Year
  Sex: Female

DRUGS (3)
  1. RYTHMOL [Suspect]
     Indication: ATRIAL FIBRILLATION
     Route: 048
     Dates: start: 20100101, end: 20100101
  2. FLECAINIDE ACETATE [Suspect]
     Indication: ATRIAL FIBRILLATION
     Dosage: 100MG PER DAY
     Route: 048
     Dates: start: 20090501, end: 20100601
  3. FLECAINIDE ACETATE [Suspect]
     Dosage: 150MG PER DAY
     Route: 048
     Dates: start: 20100601, end: 20100101

REACTIONS (1)
  - BALANCE DISORDER [None]
